FAERS Safety Report 7508599-3 (Version None)
Quarter: 2011Q2

REPORT INFORMATION
  Report Type: 
  Country: None (occurrence: None)
  Receive Date: 20110527
  Receipt Date: 20101209
  Transmission Date: 20111010
  Serious: No
  Sender: FDA-Public Use
  Company Number: A0899765A

PATIENT
  Age: 54 Year
  Sex: Male
  Weight: 63 kg

DRUGS (11)
  1. COUMADIN [Concomitant]
  2. PERCOCET [Concomitant]
  3. DAILY MULTIVITAMIN [Concomitant]
  4. HYDROCHLOROTHIAZIDE [Concomitant]
  5. ULTRAM [Concomitant]
  6. SIMVASTATIN [Concomitant]
  7. FLOLAN [Concomitant]
  8. SPIRONOLACTONE [Concomitant]
  9. OMEPRAZOLE [Concomitant]
  10. FLOLAN [Suspect]
     Dosage: 49NGKM CONTINUOUS
     Dates: start: 19990927
  11. DIGOXIN [Concomitant]

REACTIONS (1)
  - PHOTOPHOBIA [None]
